FAERS Safety Report 10013325 (Version 1)
Quarter: 2014Q1

REPORT INFORMATION
  Report Type: Spontaneous
  Country: US (occurrence: US)
  Receive Date: 20140314
  Receipt Date: 20140314
  Transmission Date: 20141002
  Serious: No
  Sender: FDA-Public Use
  Company Number: US-PFIZER INC-2014073494

PATIENT
  Age: 46 Year
  Sex: Female
  Weight: 61.22 kg

DRUGS (2)
  1. EFFEXOR XR [Suspect]
     Indication: IRRITABLE BOWEL SYNDROME
     Dosage: 150 MG, DAILY
     Dates: start: 2013
  2. PRILOSEC [Concomitant]
     Indication: GASTROOESOPHAGEAL REFLUX DISEASE
     Dosage: 20 MG, 2X/DAY

REACTIONS (1)
  - Drug ineffective for unapproved indication [Unknown]
